FAERS Safety Report 5917486-3 (Version None)
Quarter: 2008Q4

REPORT INFORMATION
  Report Type: 
  Country: None (occurrence: None)
  Receive Date: 20081010
  Receipt Date: 20081010
  Transmission Date: 20090506
  Serious: Yes (Hospitalization)
  Sender: FDA-Public Use
  Company Number: None

PATIENT
  Age: 31 Year
  Sex: Female
  Weight: 95.2554 kg

DRUGS (1)
  1. MIRENA [Suspect]
     Indication: INTRA-UTERINE CONTRACEPTIVE DEVICE
     Dosage: INSERTION 1 IUD 5 YEARS INTRA-UTERINE 3-3 1/2 MONTHS
     Route: 015
     Dates: start: 20080520, end: 20080830

REACTIONS (2)
  - MALAISE [None]
  - MIGRAINE [None]
